FAERS Safety Report 7521654-7 (Version None)
Quarter: 2011Q2

REPORT INFORMATION
  Report Type: 
  Country: None (occurrence: None)
  Receive Date: 20110603
  Receipt Date: 20110519
  Transmission Date: 20111010
  Serious: No
  Sender: FDA-Public Use
  Company Number: BE-JNJFOC-20080107621

PATIENT
  Sex: Female
  Weight: 67 kg

DRUGS (5)
  1. REMICADE [Suspect]
     Indication: CROHN'S DISEASE
     Route: 042
     Dates: start: 20070725
  2. ACETAMINOPHEN [Concomitant]
     Indication: HEADACHE
  3. REMICADE [Suspect]
     Route: 042
     Dates: start: 20071113
  4. REMICADE [Suspect]
     Route: 042
     Dates: start: 20070913
  5. REMICADE [Suspect]
     Route: 042
     Dates: start: 20050101

REACTIONS (1)
  - HERPES VIRUS INFECTION [None]
